FAERS Safety Report 5237188-9 (Version None)
Quarter: 2007Q1

REPORT INFORMATION
  Report Type: 
  Country: None (occurrence: None)
  Receive Date: 20061208
  Receipt Date: 20050322
  Transmission Date: 20070707
  Serious: Yes (Other)
  Sender: FDA-Public Use
  Company Number: 2005UW04512

PATIENT
  Age: 64 Year
  Sex: Male
  Weight: 102.05 kg

DRUGS (6)
  1. CRESTOR [Suspect]
     Indication: BLOOD CHOLESTEROL INCREASED
     Dosage: 5 MG PO
     Route: 048
     Dates: start: 20041101
  2. TENORMIN [Concomitant]
  3. ASPIRIN [Concomitant]
  4. LOPID [Concomitant]
  5. DIOVAN [Concomitant]
  6. ALLOPURINOL [Concomitant]

REACTIONS (2)
  - ABSCESS [None]
  - FURUNCLE [None]
